FAERS Safety Report 15745466 (Version 1)
Quarter: 2018Q4

REPORT INFORMATION
  Report Type: Spontaneous
  Country: DE (occurrence: DE)
  Receive Date: 20181220
  Receipt Date: 20181220
  Transmission Date: 20190205
  Serious: Yes (Other)
  Sender: FDA-Public Use
  Company Number: DE-PFIZER INC-2018244313

PATIENT
  Age: 67 Year
  Sex: Male
  Weight: 85 kg

DRUGS (2)
  1. VFEND [Suspect]
     Active Substance: VORICONAZOLE
  2. TAVANIC [Suspect]
     Active Substance: LEVOFLOXACIN
     Indication: ASPERGILLUS INFECTION

REACTIONS (1)
  - Aspergillus infection [Unknown]
